FAERS Safety Report 25282810 (Version 2)
Quarter: 2025Q2

REPORT INFORMATION
  Report Type: Spontaneous
  Country: US (occurrence: US)
  Receive Date: 20250508
  Receipt Date: 20250516
  Transmission Date: 20250716
  Serious: No
  Sender: ROCHE
  Company Number: US-ROCHE-10000273889

PATIENT
  Age: 71 Year
  Sex: Male

DRUGS (2)
  1. VABYSMO [Suspect]
     Active Substance: FARICIMAB-SVOA
     Indication: Retinal vein occlusion
     Route: 065
     Dates: start: 20250422
  2. VABYSMO [Suspect]
     Active Substance: FARICIMAB-SVOA
     Indication: Macular oedema

REACTIONS (3)
  - Eye pain [Recovering/Resolving]
  - Visual impairment [Recovering/Resolving]
  - Inflammation [Recovering/Resolving]
